FAERS Safety Report 5758280-6 (Version None)
Quarter: 2008Q2

REPORT INFORMATION
  Report Type: 
  Country: None (occurrence: None)
  Receive Date: 20080604
  Receipt Date: 20080523
  Transmission Date: 20081010
  Serious: Yes (Death, Other)
  Sender: FDA-Public Use
  Company Number: JP-BRISTOL-MYERS SQUIBB COMPANY-14173959

PATIENT
  Age: 59 Year
  Sex: Female

DRUGS (5)
  1. ENDOXAN [Suspect]
     Indication: BREAST CANCER
     Dosage: IT CONTINUED TILL 18-MAR-2008
     Route: 048
     Dates: start: 20071218, end: 20071218
  2. FLUOROURACIL [Concomitant]
     Indication: BREAST CANCER
     Route: 065
     Dates: start: 20071218, end: 20080318
  3. FARMORUBICIN [Concomitant]
     Indication: BREAST CANCER
     Route: 065
     Dates: start: 20071218, end: 20080318
  4. GLYSENNID [Concomitant]
  5. MYSLEE [Concomitant]

REACTIONS (2)
  - COMPLETED SUICIDE [None]
  - DEPRESSIVE SYMPTOM [None]
